FAERS Safety Report 15766653 (Version 3)
Quarter: 2019Q1

REPORT INFORMATION
  Report Type: Report from Study
  Country: US (occurrence: US)
  Receive Date: 20181227
  Receipt Date: 20190131
  Transmission Date: 20190417
  Serious: Yes (Death, Other)
  Sender: FDA-Public Use
  Company Number: US-B.I. PHARMACEUTICALS,INC./RIDGEFIELD-2018-BI-042933

PATIENT
  Sex: Male

DRUGS (2)
  1. OFEV [Suspect]
     Active Substance: NINTEDANIB
     Indication: IDIOPATHIC PULMONARY FIBROSIS
     Route: 048
     Dates: start: 20180806
  2. OFEV [Suspect]
     Active Substance: NINTEDANIB
     Dosage: ONLY TAKES ONE TABLET A DAY
     Route: 048

REACTIONS (7)
  - Oxygen consumption increased [Not Recovered/Not Resolved]
  - Wrong dose [Unknown]
  - Cardiac failure [Fatal]
  - Dyspnoea [Not Recovered/Not Resolved]
  - Diarrhoea [Not Recovered/Not Resolved]
  - Product administration error [Not Recovered/Not Resolved]
  - Atrial fibrillation [Fatal]
